FAERS Safety Report 13706217 (Version 2)
Quarter: 2017Q3

REPORT INFORMATION
  Report Type: Spontaneous
  Country: CZ (occurrence: CZ)
  Receive Date: 20170630
  Receipt Date: 20170731
  Transmission Date: 20171127
  Serious: Yes (Other)
  Sender: FDA-Public Use
  Company Number: CZ-TEVA-781143ROM

PATIENT
  Age: 64 Year
  Sex: Female

DRUGS (1)
  1. DACARBAZINE. [Suspect]
     Active Substance: DACARBAZINE
     Indication: LIP AND/OR ORAL CAVITY CANCER
     Dosage: 3 CYCLES
     Route: 042
     Dates: start: 201409, end: 2014

REACTIONS (2)
  - Hypotension [Recovered/Resolved]
  - Hypersensitivity [Recovered/Resolved]

NARRATIVE: CASE EVENT DATE: 2014
